FAERS Safety Report 9218466 (Version 1)
Quarter: 2013Q2

REPORT INFORMATION
  Report Type: Spontaneous
  Country: US (occurrence: US)
  Receive Date: 20130409
  Receipt Date: 20130409
  Transmission Date: 20140414
  Serious: No
  Sender: FDA-Public Use
  Company Number: US-BIOGENIDEC-2013BI030609

PATIENT
  Age: 30 Year
  Sex: Female

DRUGS (3)
  1. TYSABRI [Suspect]
     Indication: MULTIPLE SCLEROSIS
     Route: 042
     Dates: start: 20070813, end: 20081204
  2. TYSABRI [Suspect]
     Indication: MULTIPLE SCLEROSIS
     Route: 042
     Dates: start: 20090928, end: 20101217
  3. TYSABRI [Suspect]
     Indication: MULTIPLE SCLEROSIS
     Route: 042
     Dates: start: 20120320

REACTIONS (7)
  - Feeling abnormal [Not Recovered/Not Resolved]
  - Adverse drug reaction [Unknown]
  - Memory impairment [Recovered/Resolved]
  - Poor venous access [Recovered/Resolved]
  - Infusion site pain [Recovered/Resolved]
  - Pharyngitis streptococcal [Recovered/Resolved]
  - Malaise [Not Recovered/Not Resolved]
